FAERS Safety Report 7510790-7 (Version None)
Quarter: 2011Q2

REPORT INFORMATION
  Report Type: 
  Country: None (occurrence: None)
  Receive Date: 20110530
  Receipt Date: 20110524
  Transmission Date: 20111010
  Serious: Yes (Other)
  Sender: FDA-Public Use
  Company Number: FR-BRISTOL-MYERS SQUIBB COMPANY-15777352

PATIENT
  Age: 89 Year
  Sex: Female

DRUGS (13)
  1. SYMBICORT [Concomitant]
  2. NITROGLYCERIN [Concomitant]
  3. NOCTAMIDE [Concomitant]
  4. DEPAKOTE [Concomitant]
  5. MIRTAZAPINE [Concomitant]
  6. PREVISCAN [Suspect]
  7. LASIX [Concomitant]
  8. LEXOMIL [Concomitant]
  9. TRAMADOL HCL [Concomitant]
  10. NEXIUM [Concomitant]
  11. ACETAMINOPHEN [Concomitant]
  12. FUNGIZONE [Suspect]
     Dates: start: 20110331, end: 20110101
  13. FORLAX [Concomitant]

REACTIONS (2)
  - INTERNATIONAL NORMALISED RATIO INCREASED [None]
  - HAEMATOMA [None]
